FAERS Safety Report 5281700-0 (Version None)
Quarter: 2007Q1

REPORT INFORMATION
  Report Type: 
  Country: None (occurrence: None)
  Receive Date: 20070330
  Receipt Date: 20070319
  Transmission Date: 20070707
  Serious: Yes (Death)
  Sender: FDA-Public Use
  Company Number: HQWYE138104DEC06

PATIENT
  Sex: Male

DRUGS (7)
  1. EFFEXOR XR [Suspect]
     Indication: ATTENTION DEFICIT/HYPERACTIVITY DISORDER
     Route: 048
     Dates: start: 20031121, end: 20031127
  2. EFFEXOR XR [Suspect]
     Route: 048
     Dates: start: 20031128
  3. NASONEX [Concomitant]
     Dosage: UNKNOWN
  4. ALBUTEROL [Concomitant]
     Dosage: UNKNOWN
     Route: 045
  5. FLOVENT [Concomitant]
     Dosage: UNKNOWN
     Route: 045
  6. CONCERTA [Concomitant]
     Dosage: UNKNOWN
     Route: 048
  7. SYNTHROID [Concomitant]
     Dosage: 88 MCG DAILY
     Route: 048

REACTIONS (2)
  - ASPHYXIA [None]
  - COMPLETED SUICIDE [None]
